FAERS Safety Report 21023285 (Version 1)
Quarter: 2022Q2

REPORT INFORMATION
  Report Type: Spontaneous
  Country: US (occurrence: None)
  Receive Date: 20220629
  Receipt Date: 20220629
  Transmission Date: 20220721
  Serious: Yes (Life-Threatening)
  Sender: FDA-Public Use
  Company Number: None

PATIENT
  Age: 73 Year
  Sex: Male
  Weight: 62 kg

DRUGS (1)
  1. VORICONAZOLE [Suspect]
     Active Substance: VORICONAZOLE
     Indication: Bronchopulmonary aspergillosis
     Dates: start: 20200814, end: 20200815

REACTIONS (6)
  - Sinus tachycardia [None]
  - Atrial fibrillation [None]
  - Blood pressure systolic increased [None]
  - Pulmonary embolism [None]
  - Hypervolaemia [None]
  - Tachyarrhythmia [None]

NARRATIVE: CASE EVENT DATE: 20200814
